FAERS Safety Report 5958391-6 (Version None)
Quarter: 2008Q4

REPORT INFORMATION
  Report Type: 
  Country: None (occurrence: None)
  Receive Date: 20081117
  Receipt Date: 20081015
  Transmission Date: 20090506
  Serious: Yes (Life-Threatening, Hospitalization)
  Sender: FDA-Public Use
  Company Number: 2008S1018876

PATIENT
  Age: 27 Year
  Sex: Female
  Weight: 62 kg

DRUGS (5)
  1. AMNESTEEM [Suspect]
     Indication: ACNE
     Dosage: 40 MG; TWICE A WEEK; ORAL
     Route: 048
     Dates: start: 20070507, end: 20080710
  2. WELLBUTRIN [Concomitant]
  3. EFFEXOR [Concomitant]
  4. KLONOPIN [Concomitant]
  5. AMBIEN [Concomitant]

REACTIONS (4)
  - CONDITION AGGRAVATED [None]
  - DEPRESSION [None]
  - STRESS [None]
  - SUICIDE ATTEMPT [None]
